FAERS Safety Report 21688476 (Version 1)
Quarter: 2022Q4

REPORT INFORMATION
  Report Type: Other
  Country: None (occurrence: FR)
  Receive Date: 20221206
  Receipt Date: 20221206
  Transmission Date: 20230113
  Serious: Yes (Other)
  Sender: FDA-Public Use
  Company Number: FR-Air Products and Chemicals, Inc. -2135595

PATIENT
  Age: 81 Year
  Sex: Female

DRUGS (1)
  1. OXYGEN [Suspect]
     Active Substance: OXYGEN
     Dates: start: 20200419, end: 20200419

REACTIONS (3)
  - Device use error [None]
  - Product administration error [None]
  - Depressed level of consciousness [None]
